FAERS Safety Report 7699301-3 (Version None)
Quarter: 2011Q3

REPORT INFORMATION
  Report Type: 
  Country: None (occurrence: None)
  Receive Date: 20110819
  Receipt Date: 20110810
  Transmission Date: 20111222
  Serious: Yes (Other)
  Sender: FDA-Public Use
  Company Number: IE-ASTRAZENECA-2011SE43689

PATIENT
  Age: 56 Year
  Sex: Male
  Weight: 78 kg

DRUGS (3)
  1. ISOPTIN [Concomitant]
     Route: 048
     Dates: start: 20050101
  2. CRESTOR [Suspect]
     Indication: HYPERLIPIDAEMIA
     Route: 048
     Dates: start: 20050101
  3. CAPRIN [Concomitant]
     Route: 048
     Dates: start: 19980101

REACTIONS (1)
  - PHOTOSENSITIVITY REACTION [None]
